FAERS Safety Report 16827308 (Version 2)
Quarter: 2019Q3

REPORT INFORMATION
  Report Type: Spontaneous
  Country: DE (occurrence: DE)
  Receive Date: 20190919
  Receipt Date: 20190919
  Transmission Date: 20191005
  Serious: Yes (Hospitalization, Other)
  Sender: FDA-Public Use
  Company Number: DE-PFIZER INC-2019386640

PATIENT
  Age: 32 Year
  Sex: Male

DRUGS (6)
  1. PREGABALIN. [Suspect]
     Active Substance: PREGABALIN
     Dosage: 300 MG, DAILY
  2. BUPROPION. [Concomitant]
     Active Substance: BUPROPION
     Dosage: 150 MG, DAILY
     Dates: start: 201712
  3. LITHIUM CARBONATE. [Suspect]
     Active Substance: LITHIUM CARBONATE
     Dosage: 1125 MG, DAILY
     Dates: start: 201601, end: 201608
  4. LITHIUM CARBONATE. [Suspect]
     Active Substance: LITHIUM CARBONATE
     Dosage: 900 MG, DAILY
     Dates: start: 201706, end: 201711
  5. TIZANIDINE. [Suspect]
     Active Substance: TIZANIDINE
     Dosage: 12 MG, DAILY
     Dates: end: 201608
  6. VENLAFAXINE [Concomitant]
     Active Substance: VENLAFAXINE HYDROCHLORIDE
     Dosage: UNK

REACTIONS (9)
  - Kidney enlargement [Unknown]
  - Drug ineffective [Unknown]
  - Nephrotic syndrome [Recovered/Resolved]
  - Weight increased [Unknown]
  - Persistent depressive disorder [Unknown]
  - Dyspnoea [Unknown]
  - Pain [Unknown]
  - Pleural effusion [Recovered/Resolved]
  - Oedema [Recovered/Resolved]

NARRATIVE: CASE EVENT DATE: 2016
